FAERS Safety Report 21404143 (Version 1)
Quarter: 2022Q4

REPORT INFORMATION
  Report Type: Spontaneous
  Country: US (occurrence: US)
  Receive Date: 20221003
  Receipt Date: 20221003
  Transmission Date: 20230113
  Serious: Yes (Other)
  Sender: FDA-Public Use
  Company Number: US-ANIPHARMA-2022-US-023056

PATIENT
  Age: 26 Year
  Sex: Male

DRUGS (6)
  1. LITHIUM [Suspect]
     Active Substance: LITHIUM
     Indication: Bipolar disorder
  2. RISPERIDONE [Suspect]
     Active Substance: RISPERIDONE
     Indication: Bipolar disorder
  3. ARIPIPRAZOLE [Suspect]
     Active Substance: ARIPIPRAZOLE
     Indication: Bipolar disorder
  4. FLUPHENAZINE [Suspect]
     Active Substance: FLUPHENAZINE
     Indication: Bipolar disorder
  5. OLANZAPINE [Suspect]
     Active Substance: OLANZAPINE
     Indication: Bipolar disorder
  6. VALPROIC ACID [Concomitant]
     Active Substance: VALPROIC ACID
     Dosage: 20MG TWICE/DAY

REACTIONS (1)
  - Rhabdomyolysis [Recovered/Resolved]
